FAERS Safety Report 19110905 (Version 2)
Quarter: 2021Q3

REPORT INFORMATION
  Report Type: Report from Study
  Country: None (occurrence: DE)
  Receive Date: 20210409
  Receipt Date: 20210809
  Transmission Date: 20211014
  Serious: Yes (Hospitalization)
  Sender: FDA-Public Use
  Company Number: DE-ABBVIE-21K-062-3850775-00

PATIENT
  Age: 65 Year
  Sex: Female

DRUGS (7)
  1. OLUMIANT [Concomitant]
     Active Substance: BARICITINIB
     Indication: PRODUCT USED FOR UNKNOWN INDICATION
     Dates: start: 201711, end: 202006
  2. RINVOQ [Suspect]
     Active Substance: UPADACITINIB
     Indication: RHEUMATOID ARTHRITIS
     Route: 048
     Dates: start: 20200623
  3. MTX [Concomitant]
     Active Substance: METHOTREXATE SODIUM
     Dosage: START DATE BETWEEN 26 AUG 2013?28 FEB 2014?STOP DATE BETWEEN 10 JUL 2015?25 JAN 2016
  4. MTX [Concomitant]
     Active Substance: METHOTREXATE SODIUM
     Dosage: START DATE BETWEEN 10 JUL 2015?25 JAN 2016?STOP DATE BETWEEN 27 NOV 2017?20 AUG 2018
  5. MTX [Concomitant]
     Active Substance: METHOTREXATE SODIUM
     Dosage: START DATE BETWEEN 13 FEB 2020?22 JUN 2020
  6. MTX [Concomitant]
     Active Substance: METHOTREXATE SODIUM
     Dosage: START DATE BETWEEN 27 NOV 2017?20 AUG 2018?STOP DATE BETWEEN 13 FEB 2020?22 JUN 2020
  7. MTX [Concomitant]
     Active Substance: METHOTREXATE SODIUM
     Indication: PRODUCT USED FOR UNKNOWN INDICATION
     Dosage: START DATE BETWEEN 25 MAR 2013?26 AUG 2013?STOP DATE BETWEEN 26 AUG2013 TO 28 FEB 2014

REACTIONS (2)
  - Post herpetic neuralgia [Recovered/Resolved]
  - Herpes zoster [Recovered/Resolved]

NARRATIVE: CASE EVENT DATE: 20210108
